FAERS Safety Report 8511372-0 (Version None)
Quarter: 2012Q3

REPORT INFORMATION
  Report Type: 
  Country: None (occurrence: None)
  Receive Date: 20120716
  Receipt Date: 20120711
  Transmission Date: 20120928
  Serious: Yes (Death)
  Sender: FDA-Public Use
  Company Number: JP-ASTELLAS-2012JP006372

PATIENT
  Age: 48 Year
  Sex: Male

DRUGS (6)
  1. EVEROLIMUS [Concomitant]
     Route: 048
  2. PREDNISOLONE [Concomitant]
     Indication: IMMUNOSUPPRESSANT DRUG THERAPY
     Route: 065
  3. CELLCEPT [Suspect]
     Indication: IMMUNOSUPPRESSANT DRUG THERAPY
     Route: 048
  4. PROGRAF [Suspect]
     Indication: IMMUNOSUPPRESSANT DRUG THERAPY
     Route: 065
  5. PROGRAF [Suspect]
     Route: 065
  6. FLUOROPYRIMIDINE [Concomitant]
     Indication: CHEMOTHERAPY
     Route: 048

REACTIONS (1)
  - ADENOCARCINOMA PANCREAS [None]
